FAERS Safety Report 4407164-4 (Version None)
Quarter: 2004Q3

REPORT INFORMATION
  Report Type: 
  Country: None (occurrence: None)
  Receive Date: 20040723
  Receipt Date: 20040723
  Transmission Date: 20050211
  Serious: Yes (Other)
  Sender: FDA-Public Use
  Company Number: None

PATIENT
  Age: 71 Year
  Sex: Male
  Weight: 78 kg

DRUGS (9)
  1. LISINOPRIL [Suspect]
  2. GATIFLOXACIN [Concomitant]
  3. CIPROFLOXACIN/DEXAMETHASONE OTIC [Concomitant]
  4. METFORMIN HCL [Concomitant]
  5. NAPROXEN [Concomitant]
  6. NIACIN (NIASPAN-KOS) [Concomitant]
  7. TERAZOSIN HCL [Concomitant]
  8. OXYCODONE 5 MG/ACETAMINOPHEN [Concomitant]
  9. SIMVASTATIN [Concomitant]

REACTIONS (1)
  - HYPERKALAEMIA [None]
